FAERS Safety Report 4972304-5 (Version None)
Quarter: 2006Q2

REPORT INFORMATION
  Report Type: 
  Country: None (occurrence: None)
  Receive Date: 20060413
  Receipt Date: 20060317
  Transmission Date: 20061013
  Serious: Yes (Death, Hospitalization, Other)
  Sender: FDA-Public Use
  Company Number: JP-BRISTOL-MYERS SQUIBB COMPANY-13325311

PATIENT
  Age: 52 Year
  Sex: Female

DRUGS (3)
  1. ENDOXAN [Suspect]
     Dates: start: 20051108
  2. AREDIA [Suspect]
     Route: 041
     Dates: start: 20051107, end: 20060104
  3. EPIRUBICIN [Concomitant]
     Dates: start: 20051108

REACTIONS (9)
  - ANAEMIA [None]
  - BREAST CANCER [None]
  - CONDITION AGGRAVATED [None]
  - MALIGNANT PLEURAL EFFUSION [None]
  - METASTASES TO BONE [None]
  - METASTASES TO LYMPH NODES [None]
  - METASTASES TO THE MEDIASTINUM [None]
  - OXYGEN SATURATION DECREASED [None]
  - PYREXIA [None]
